FAERS Safety Report 24423687 (Version 1)
Quarter: 2024Q4

REPORT INFORMATION
  Report Type: Spontaneous
  Country: US (occurrence: None)
  Receive Date: 20241010
  Receipt Date: 20241010
  Transmission Date: 20250115
  Serious: No
  Sender: Public
  Company Number: None

PATIENT
  Sex: Male
  Weight: 82.78 kg

DRUGS (22)
  1. DARZALEX FASPRO [Suspect]
     Active Substance: DARATUMUMAB\HYALURONIDASE-FIHJ
     Dates: start: 20240919, end: 20240926
  2. REVLIMID [Suspect]
     Active Substance: LENALIDOMIDE
     Dates: start: 20240919, end: 20241002
  3. DEXAMETHASONE [Suspect]
     Active Substance: DEXAMETHASONE
     Dates: start: 20240919, end: 20240926
  4. ACYCLOVIR (ZORAX) 400MG [Concomitant]
  5. ALBUTEROL 108 [Concomitant]
  6. ASPIRIN 81MG [Concomitant]
  7. ASPIRIN 325MG [Concomitant]
  8. ATORVASTATIN [Concomitant]
  9. AZITHROMYCIN (ZITHROMAX) 500MG [Concomitant]
  10. BENZONATATE (TESSALON PERLES) 100MG [Concomitant]
  11. CETIRIZINE (ZYRTEC) 10MG [Concomitant]
  12. HYDROCHLOROTHIAZIDE (HYDRODIURIL) 25MG [Concomitant]
  13. IPRATROPIUM-ALBUTEROL 20-100MCG/ACT INHALER [Concomitant]
  14. LATANOPROST (XALATAN) 0.005% OPHTHALMIC SOLUTION [Concomitant]
  15. LOSARTAN (COZAAR) 100MG [Concomitant]
  16. METOPROLOL TARTRATE (LOPRESSOR) 50MG [Concomitant]
  17. SILDENAFIL (VIAGRA) 100MG [Concomitant]
  18. SULFAMETHOXAZOLE-TRIMETHOPRIM  (BACTRIM DS) 800-160MG [Concomitant]
  19. SODIUM CHLORIDE [Concomitant]
     Active Substance: SODIUM CHLORIDE
  20. ACETAMINOPHEN [Concomitant]
     Active Substance: ACETAMINOPHEN
  21. MONTELUKAST [Concomitant]
  22. COMBIVENT-RESPIMAT [Concomitant]

REACTIONS (2)
  - Neutrophil count decreased [None]
  - Therapy interrupted [None]
